FAERS Safety Report 5928049-8 (Version None)
Quarter: 2008Q4

REPORT INFORMATION
  Report Type: 
  Country: None (occurrence: None)
  Receive Date: 20081023
  Receipt Date: 20081021
  Transmission Date: 20090506
  Serious: Yes (Other)
  Sender: FDA-Public Use
  Company Number: A0752782A

PATIENT
  Age: 53 Year
  Sex: Male

DRUGS (2)
  1. AVODART [Suspect]
     Indication: BENIGN PROSTATIC HYPERPLASIA
     Dosage: 1CAP PER DAY
     Route: 048
     Dates: start: 20080301, end: 20080602
  2. UROXATRAL [Suspect]
     Dates: end: 20080602

REACTIONS (2)
  - PHOTOSENSITIVITY REACTION [None]
  - SKIN DISCOLOURATION [None]
